FAERS Safety Report 10553973 (Version 1)
Quarter: 2014Q4

REPORT INFORMATION
  Report Type: Spontaneous
  Country: JP (occurrence: JP)
  Receive Date: 20141030
  Receipt Date: 20141030
  Transmission Date: 20150529
  Serious: Yes (Other)
  Sender: FDA-Public Use
  Company Number: PHHY2012JP135828

PATIENT

DRUGS (3)
  1. EXJADE [Suspect]
     Active Substance: DEFERASIROX
     Indication: CHRONIC MYELOID LEUKAEMIA
     Dosage: 125 MG, UNK
  2. EXJADE [Suspect]
     Active Substance: DEFERASIROX
     Dosage: 125 MG, UNK
  3. EXJADE [Suspect]
     Active Substance: DEFERASIROX
     Dosage: 250 MG, UNK

REACTIONS (2)
  - Haemolytic anaemia [Unknown]
  - Pyrexia [Unknown]
